FAERS Safety Report 19674651 (Version 8)
Quarter: 2022Q2

REPORT INFORMATION
  Report Type: Spontaneous
  Country: US (occurrence: US)
  Receive Date: 20210809
  Receipt Date: 20220629
  Transmission Date: 20220721
  Serious: Yes (Hospitalization, Other)
  Sender: FDA-Public Use
  Company Number: US-BIOCODEX2-2021000877

PATIENT

DRUGS (11)
  1. DIACOMIT [Suspect]
     Active Substance: STIRIPENTOL
     Indication: Severe myoclonic epilepsy of infancy
     Dosage: 250 MG, MIX EACH PACKET IN 10 ML WATER, GIVE 14 ML BY MOUTH TWICE DAILY
     Route: 048
     Dates: start: 20210521
  2. DIACOMIT [Suspect]
     Active Substance: STIRIPENTOL
     Dosage: 15 ML TWICE A DAY (MIX 2 PACKS OF 250 MG IN 20 ML OF WATER AND GIVE 15 ML [375MG])
     Route: 048
  3. DIACOMIT [Suspect]
     Active Substance: STIRIPENTOL
     Dosage: 375 MG TWICE DAILY
     Route: 065
  4. DIACOMIT [Suspect]
     Active Substance: STIRIPENTOL
     Dosage: 20ML TWICE A DAY
     Route: 065
  5. ONFI [Concomitant]
     Active Substance: CLOBAZAM
     Indication: Product used for unknown indication
     Dosage: UNK
     Route: 065
  6. ONFI [Concomitant]
     Active Substance: CLOBAZAM
     Dosage: 3 ML IN THE MORNING AND 4 ML IN HE EVENING
     Route: 065
  7. KEPPRA [Concomitant]
     Active Substance: LEVETIRACETAM
     Indication: Product used for unknown indication
     Route: 065
  8. ZARONTIN [Concomitant]
     Active Substance: ETHOSUXIMIDE
     Indication: Product used for unknown indication
     Route: 065
  9. FINTEPLA [Concomitant]
     Active Substance: FENFLURAMINE
     Indication: Product used for unknown indication
     Route: 065
  10. EPIDIOLEX [Concomitant]
     Active Substance: CANNABIDIOL
     Indication: Product used for unknown indication
     Dosage: UNK
     Route: 065
  11. CETIRIZINE [Concomitant]
     Active Substance: CETIRIZINE HYDROCHLORIDE
     Indication: Product used for unknown indication
     Route: 065

REACTIONS (8)
  - Road traffic accident [Unknown]
  - Fall [Unknown]
  - Seizure [Unknown]
  - Adverse event [Unknown]
  - Constipation [Unknown]
  - Product dose omission issue [Unknown]
  - Somnolence [Unknown]
  - Fatigue [Unknown]

NARRATIVE: CASE EVENT DATE: 20211118
